FAERS Safety Report 19901810 (Version 1)
Quarter: 2021Q3

REPORT INFORMATION
  Report Type: Spontaneous
  Country: US (occurrence: US)
  Receive Date: 20210930
  Receipt Date: 20210930
  Transmission Date: 20211014
  Serious: No
  Sender: FDA-Public Use
  Company Number: US-CELGENEUS-USA-20210906434

PATIENT
  Age: 61 Year
  Sex: Male

DRUGS (1)
  1. REVLIMID [Suspect]
     Active Substance: LENALIDOMIDE
     Indication: PLASMA CELL MYELOMA
     Dosage: 25 MILLIGRAM
     Route: 048
     Dates: start: 202105

REACTIONS (6)
  - Hyperaesthesia teeth [Unknown]
  - Asthenia [Unknown]
  - Platelet count decreased [Unknown]
  - Skin exfoliation [Unknown]
  - Visual impairment [Unknown]
  - Blister [Unknown]

NARRATIVE: CASE EVENT DATE: 20210901
